FAERS Safety Report 6788309-8 (Version None)
Quarter: 2010Q2

REPORT INFORMATION
  Report Type: 
  Country: None (occurrence: None)
  Receive Date: 20100623
  Receipt Date: 20080407
  Transmission Date: 20101027
  Serious: No
  Sender: FDA-Public Use
  Company Number: US-PFIZER INC-2008007754

PATIENT
  Sex: Female
  Weight: 54.43 kg

DRUGS (9)
  1. XALATAN [Suspect]
     Indication: OPEN ANGLE GLAUCOMA
     Route: 031
     Dates: start: 20051001
  2. XALATAN [Suspect]
     Indication: NORMAL TENSION GLAUCOMA
  3. GLUCOSAMINE [Concomitant]
     Indication: ARTHRITIS
  4. VITAMIN C [Concomitant]
  5. VITAMIN D [Concomitant]
  6. VITAMIN E [Concomitant]
  7. CALCIUM CARBONATE [Concomitant]
  8. VITAMIN B-12 [Concomitant]
  9. FISH OIL [Concomitant]

REACTIONS (5)
  - BODY TEMPERATURE DECREASED [None]
  - COLD SWEAT [None]
  - FEELING COLD [None]
  - RHINORRHOEA [None]
  - SINUSITIS [None]
